FAERS Safety Report 6623738-4 (Version None)
Quarter: 2010Q1

REPORT INFORMATION
  Report Type: 
  Country: None (occurrence: None)
  Receive Date: 20100310
  Receipt Date: 20091209
  Transmission Date: 20100710
  Serious: No
  Sender: FDA-Public Use
  Company Number: US-BIOGENIDEC-2009BI037281

PATIENT
  Sex: Female

DRUGS (2)
  1. AVONEX [Suspect]
     Indication: MULTIPLE SCLEROSIS
     Route: 030
     Dates: start: 20010101
  2. BENADRYL [Concomitant]
     Indication: ANXIOLYTIC THERAPY

REACTIONS (5)
  - CROHN'S DISEASE [None]
  - EYE DISORDER [None]
  - FIBROMYALGIA [None]
  - GAIT DISTURBANCE [None]
  - HEARING IMPAIRED [None]
